FAERS Safety Report 12218037 (Version 1)
Quarter: 2016Q1

REPORT INFORMATION
  Report Type: Spontaneous
  Country: US (occurrence: US)
  Receive Date: 20160329
  Receipt Date: 20160329
  Transmission Date: 20160526
  Serious: No
  Sender: FDA-Public Use
  Company Number: US-PFIZER INC-2016158301

PATIENT
  Age: 60 Year
  Sex: Female

DRUGS (2)
  1. LETROZOLE. [Suspect]
     Active Substance: LETROZOLE
     Dosage: UNK
  2. IBRANCE [Suspect]
     Active Substance: PALBOCICLIB
     Dosage: 125 MG, CYCLIC(1-21 OF A 28 DAYS CYCLE, TAKE WITH LETROZOLE)
     Route: 048

REACTIONS (4)
  - Nausea [Recovered/Resolved]
  - Pruritus [Unknown]
  - Diarrhoea [Recovered/Resolved]
  - Rash [Unknown]
